FAERS Safety Report 5517613-6 (Version None)
Quarter: 2007Q4

REPORT INFORMATION
  Report Type: 
  Country: None (occurrence: None)
  Receive Date: 20071114
  Receipt Date: 20071102
  Transmission Date: 20080405
  Serious: Yes (Hospitalization, Other)
  Sender: FDA-Public Use
  Company Number: US-PFIZER INC-2007093134

PATIENT
  Sex: Male
  Weight: 120 kg

DRUGS (5)
  1. LYRICA [Suspect]
     Indication: DIABETIC NEUROPATHY
     Dates: start: 20070101, end: 20071001
  2. HUMULIN R [Concomitant]
     Indication: TYPE 2 DIABETES MELLITUS
  3. HUMALOG [Concomitant]
     Indication: TYPE 2 DIABETES MELLITUS
  4. AVANDIA [Concomitant]
     Indication: TYPE 2 DIABETES MELLITUS
  5. DETROL LA [Concomitant]
     Indication: MICTURITION URGENCY

REACTIONS (2)
  - GASTRIC BYPASS [None]
  - WEIGHT DECREASED [None]
